FAERS Safety Report 25070612 (Version 2)
Quarter: 2025Q2

REPORT INFORMATION
  Report Type: Spontaneous
  Country: US (occurrence: US)
  Receive Date: 20250312
  Receipt Date: 20250511
  Transmission Date: 20250716
  Serious: Yes (Other)
  Sender: SANOFI AVENTIS
  Company Number: US-SA-2025SA072547

PATIENT
  Age: 58 Year
  Sex: Female

DRUGS (2)
  1. DUPIXENT [Suspect]
     Active Substance: DUPILUMAB
  2. DUPIXENT [Suspect]
     Active Substance: DUPILUMAB
     Dosage: 300 MG, QOW
     Route: 058
     Dates: start: 202202, end: 202502

REACTIONS (5)
  - Hypersensitivity [Unknown]
  - Rash [Unknown]
  - Ocular hyperaemia [Unknown]
  - Visual impairment [Not Recovered/Not Resolved]
  - Lacrimation increased [Unknown]
